FAERS Safety Report 21556383 (Version 2)
Quarter: 2023Q1

REPORT INFORMATION
  Report Type: Spontaneous
  Country: US (occurrence: US)
  Receive Date: 20221104
  Receipt Date: 20230106
  Transmission Date: 20230418
  Serious: Yes (Other)
  Sender: FDA-Public Use
  Company Number: US-TEVA-2022-US-2823962

PATIENT
  Age: 61 Year
  Sex: Male
  Weight: 70.3 kg

DRUGS (10)
  1. VALSARTAN [Suspect]
     Active Substance: VALSARTAN
     Indication: Hypertension
     Dosage: 320 MILLIGRAM DAILY;
     Route: 048
     Dates: start: 20180218, end: 20180529
  2. VALSARTAN [Suspect]
     Active Substance: VALSARTAN
     Indication: Hypertension
     Dosage: 320 MILLIGRAM DAILY;
     Route: 048
     Dates: start: 20160624, end: 20180122
  3. VALSARTAN [Suspect]
     Active Substance: VALSARTAN
     Indication: Hypertension
     Dosage: 320 MILLIGRAM DAILY;
     Route: 048
     Dates: start: 20180123, end: 20180217
  4. HYDROCHLOROTHIAZIDE [Concomitant]
     Active Substance: HYDROCHLOROTHIAZIDE
     Indication: Hypertension
     Dosage: 12.5 MILLIGRAM DAILY;
     Route: 065
  5. AMLODIPINE [Concomitant]
     Active Substance: AMLODIPINE BESYLATE
     Indication: Hypertension
     Route: 065
  6. DIOVAN [Concomitant]
     Active Substance: VALSARTAN
     Indication: Hypertension
     Dosage: 160 MILLIGRAM DAILY;
     Route: 065
     Dates: start: 20000101, end: 20160623
  7. DIOVAN [Concomitant]
     Active Substance: VALSARTAN
     Dosage: 320 MILLIGRAM DAILY;
     Route: 065
     Dates: start: 20000101, end: 20160623
  8. VITAMINS [Concomitant]
     Active Substance: VITAMINS
     Indication: Product used for unknown indication
     Route: 065
  9. VITAMIN D NOS [Concomitant]
     Active Substance: VITAMIN D NOS
     Indication: Vitamin D deficiency
     Route: 065
  10. ASPIRIN [Concomitant]
     Active Substance: ASPIRIN
     Indication: Product used for unknown indication
     Dosage: 325 MILLIGRAM DAILY;
     Route: 048

REACTIONS (3)
  - Prostate cancer [Recovering/Resolving]
  - Erectile dysfunction [Recovering/Resolving]
  - Incontinence [Recovered/Resolved]

NARRATIVE: CASE EVENT DATE: 20210101
